FAERS Safety Report 9896732 (Version 1)
Quarter: 2014Q1

REPORT INFORMATION
  Report Type: Spontaneous
  Country: US (occurrence: US)
  Receive Date: 20140213
  Receipt Date: 20140213
  Transmission Date: 20141002
  Serious: No
  Sender: FDA-Public Use
  Company Number: US-BRISTOL-MYERS SQUIBB COMPANY-19174747

PATIENT
  Age: 64 Year
  Sex: Female
  Weight: 77.55 kg

DRUGS (3)
  1. ORENCIA [Suspect]
     Indication: RHEUMATOID ARTHRITIS
     Dosage: LAST INF:17JUL13
     Route: 042
     Dates: start: 201202
  2. METHOTREXATE [Suspect]
  3. TOPIRAMATE [Concomitant]
     Indication: BIPOLAR DISORDER

REACTIONS (2)
  - Alopecia [Unknown]
  - Weight increased [Unknown]
